FAERS Safety Report 13418100 (Version 1)
Quarter: 2017Q2

REPORT INFORMATION
  Report Type: Spontaneous
  Country: US (occurrence: US)
  Receive Date: 20170407
  Receipt Date: 20170407
  Transmission Date: 20170830
  Serious: Yes (Other)
  Sender: FDA-Public Use
  Company Number: US-ELI_LILLY_AND_COMPANY-US201608001539

PATIENT
  Sex: Female

DRUGS (3)
  1. CYMBALTA [Suspect]
     Active Substance: DULOXETINE HYDROCHLORIDE
     Dosage: 60 MG, QD
     Route: 048
  2. CYMBALTA [Suspect]
     Active Substance: DULOXETINE HYDROCHLORIDE
     Indication: BACK PAIN
     Dosage: 30 MG, QD
     Route: 048
  3. CYMBALTA [Suspect]
     Active Substance: DULOXETINE HYDROCHLORIDE
     Dosage: 90 MG, QD
     Route: 048

REACTIONS (29)
  - Dysphoria [Unknown]
  - Agitation [Unknown]
  - Nausea [Unknown]
  - Fatigue [Unknown]
  - Back pain [Unknown]
  - Affect lability [Unknown]
  - Irritability [Unknown]
  - Sensory disturbance [Unknown]
  - Arthralgia [Unknown]
  - Drug withdrawal syndrome [Unknown]
  - Paraesthesia [Unknown]
  - Vomiting [Unknown]
  - Diarrhoea [Unknown]
  - Headache [Unknown]
  - Blindness [Unknown]
  - Hyperhidrosis [Unknown]
  - Anxiety [Unknown]
  - Disturbance in attention [Unknown]
  - Vertigo [Unknown]
  - Dizziness [Unknown]
  - Constipation [Unknown]
  - Gait disturbance [Unknown]
  - Confusional state [Unknown]
  - Heart rate irregular [Unknown]
  - Lethargy [Unknown]
  - Insomnia [Unknown]
  - Cataract [Unknown]
  - Neck pain [Unknown]
  - Vision blurred [Unknown]
